FAERS Safety Report 4968710-5 (Version None)
Quarter: 2006Q2

REPORT INFORMATION
  Report Type: 
  Country: None (occurrence: None)
  Receive Date: 20060411
  Receipt Date: 20060323
  Transmission Date: 20061013
  Serious: Yes (Other)
  Sender: FDA-Public Use
  Company Number: ES-SOLVAY-00306001060

PATIENT
  Age: 79 Year
  Sex: Female

DRUGS (1)
  1. MESALAZINE [Suspect]
     Indication: CROHN'S DISEASE
     Dosage: DAILY DOSE: 3 MILLIGRAM(S) PER DAY
     Route: 065

REACTIONS (1)
  - EXTRANODAL MARGINAL ZONE B-CELL LYMPHOMA (MALT TYPE) [None]
